FAERS Safety Report 9432756 (Version 2)
Quarter: 2015Q3

REPORT INFORMATION
  Report Type: Spontaneous
  Country: US (occurrence: US)
  Receive Date: 20130731
  Receipt Date: 20150827
  Transmission Date: 20151125
  Serious: Yes (Hospitalization, Other)
  Sender: FDA-Public Use
  Company Number: US-SANOFI-AVENTIS-2013SA076299

PATIENT
  Sex: Female

DRUGS (3)
  1. AMOXICILLIN. [Suspect]
     Active Substance: AMOXICILLIN
     Route: 065
     Dates: start: 20150819
  2. NEBIVOLOL. [Suspect]
     Active Substance: NEBIVOLOL
     Indication: ATRIAL FIBRILLATION
     Route: 065
  3. MULTAQ [Suspect]
     Active Substance: DRONEDARONE
     Indication: ATRIAL FIBRILLATION
     Route: 048
     Dates: start: 2009

REACTIONS (3)
  - Atrial fibrillation [Not Recovered/Not Resolved]
  - Kidney infection [Unknown]
  - Haemorrhage [Unknown]
